FAERS Safety Report 15836307 (Version 3)
Quarter: 2019Q1

REPORT INFORMATION
  Report Type: Spontaneous
  Country: GB (occurrence: GB)
  Receive Date: 20190117
  Receipt Date: 20190225
  Transmission Date: 20190417
  Serious: Yes (Other)
  Sender: FDA-Public Use
  Company Number: GB-BEH-2019098488

PATIENT
  Age: 64 Year
  Sex: Male
  Weight: 76 kg

DRUGS (1)
  1. PRIVIGEN [Suspect]
     Active Substance: HUMAN IMMUNOGLOBULIN G
     Indication: NERVOUS SYSTEM DISORDER
     Dosage: UNK
     Route: 042
     Dates: start: 2004, end: 2014

REACTIONS (10)
  - Paraesthesia oral [Recovered/Resolved]
  - Dysphagia [Recovered/Resolved]
  - Pharyngeal oedema [Recovered/Resolved]
  - Urticaria [Recovered/Resolved]
  - Anaphylactic reaction [Recovered/Resolved]
  - Chills [Recovered/Resolved]
  - Dizziness [Recovered/Resolved]
  - Flushing [Recovered/Resolved]
  - Pruritus [Recovered/Resolved]
  - Hypotension [Recovered/Resolved]

NARRATIVE: CASE EVENT DATE: 2014
